FAERS Safety Report 5481948-6 (Version None)
Quarter: 2007Q4

REPORT INFORMATION
  Report Type: 
  Country: None (occurrence: None)
  Receive Date: 20071005
  Receipt Date: 20070917
  Transmission Date: 20080405
  Serious: Yes (Hospitalization)
  Sender: FDA-Public Use
  Company Number: APP200700261

PATIENT
  Age: 30 Year
  Sex: Male
  Weight: 95.3 kg

DRUGS (24)
  1. CISPLATIN [Suspect]
     Indication: YOLK SAC TUMOUR SITE UNSPECIFIED
     Dosage: (42 MG, DAYS 1 - 5), INTRAVENOUS
     Route: 042
     Dates: start: 20070723, end: 20070727
  2. TAXOL [Suspect]
     Indication: YOLK SAC TUMOUR SITE UNSPECIFIED
     Dosage: (388 MG, ONCE), INTRAVENOUS
     Route: 042
     Dates: start: 20070724
  3. ACETAMINOPHEN [Concomitant]
  4. ACETAMINOPHEN/HYDROCODONE (PROCET/01554201/) [Concomitant]
  5. CHLORPHENIRAMINE/HYDROCODONE (TUSSIONEX PENNKINETIC) [Concomitant]
  6. DIPHENHYDRAMINE HCL [Concomitant]
  7. NEUPOGEN [Concomitant]
  8. GRANISETRON  HCL [Concomitant]
  9. HYDROCHLOROTHIAZIDE [Concomitant]
  10. LOPERAMIDE [Concomitant]
  11. LORAZEPAM [Concomitant]
  12. MAGNESIUM OXIDE (MAGNESIUM OXIDE) [Concomitant]
  13. MAGNESIUM SULFATE [Concomitant]
  14. NALOXONE [Concomitant]
  15. ONDANSETRON HCL (ONDANSETRON) [Concomitant]
  16. PANTOPRAZOLE SODIUM [Concomitant]
  17. POTASSIUM CHLORIDE [Concomitant]
  18. PRAMOXINE W/ZINC OXIDE IN MINERAL OIL (PRAMOCAINE HYDROCHLORIDE) [Concomitant]
  19. PREGABALIN (PREGABALIN) [Concomitant]
  20. SENNOSIDS-DOCUSATE SODIUM (SENNOSIDE A+B) [Concomitant]
  21. SODIUM BICARBONATE (SODIUM BICARBONE) [Concomitant]
  22. BLEOMYCIN [Suspect]
     Dosage: (30 USP UNITS, DAY 1), INTRAVENOUS; (30 USP UNITS DAY 8), INTRAVENOUS
     Route: 042
     Dates: start: 20070730
  23. ETOPOSIDE [Suspect]
     Indication: YOLK SAC TUMOUR SITE UNSPECIFIED
     Dosage: (210 MG, DAYS 1 - 5), INTRAVENOUS
     Route: 042
     Dates: start: 20070723, end: 20070727
  24. OXALIPLATIN (OXALIPLATIN) [Suspect]
     Indication: YOLK SAC TUMOUR SITE UNSPECIFIED
     Dosage: (273 MG, DAY 10), INTRAVENOUS
     Route: 042
     Dates: start: 20070801

REACTIONS (4)
  - GRANULOCYTOPENIA [None]
  - PLATELET COUNT DECREASED [None]
  - STOMATITIS [None]
  - WHITE BLOOD CELL COUNT DECREASED [None]
